FAERS Safety Report 14097496 (Version 1)
Quarter: 2017Q4

REPORT INFORMATION
  Report Type: Spontaneous
  Country: US (occurrence: US)
  Receive Date: 20171017
  Receipt Date: 20171017
  Transmission Date: 20180321
  Serious: Yes (Other)
  Sender: FDA-Public Use
  Company Number: None

PATIENT
  Age: 69 Year
  Sex: Male
  Weight: 66.6 kg

DRUGS (9)
  1. PROBIOTIC [Concomitant]
     Active Substance: PROBIOTICS NOS
  2. AFINITOR [Suspect]
     Active Substance: EVEROLIMUS
     Indication: GASTROENTEROPANCREATIC NEUROENDOCRINE TUMOUR DISEASE
     Dosage: ?          QUANTITY:1 TABLET(S);?
     Route: 048
     Dates: start: 20170712
  3. FINESTERIDE [Concomitant]
     Active Substance: FINASTERIDE
  4. ICAR-C+ VITAMIN [Concomitant]
  5. AFINITOR [Concomitant]
     Active Substance: EVEROLIMUS
  6. LANREOTIDE [Concomitant]
     Active Substance: LANREOTIDE
  7. ZENPEP [Concomitant]
     Active Substance: PANCRELIPASE AMYLASE\PANCRELIPASE LIPASE\PANCRELIPASE PROTEASE
  8. DEXAMENTHASONE [Concomitant]
  9. CYANOCOBALAMINE [Concomitant]
     Active Substance: CYANOCOBALAMIN

REACTIONS (1)
  - Retinal tear [None]

NARRATIVE: CASE EVENT DATE: 20171015
